FAERS Safety Report 10660700 (Version 1)
Quarter: 2014Q4

REPORT INFORMATION
  Report Type: Spontaneous
  Country: US (occurrence: US)
  Receive Date: 20141217
  Receipt Date: 20141217
  Transmission Date: 20150529
  Serious: No
  Sender: FDA-Public Use
  Company Number: US-GLAXOSMITHKLINE-A1091045A

PATIENT

DRUGS (1)
  1. VOTRIENT [Suspect]
     Active Substance: PAZOPANIB HYDROCHLORIDE
     Indication: NEOPLASM MALIGNANT
     Dosage: 200MG TABLETS, UNKNOWN DOSING.
     Route: 065
     Dates: start: 20140828

REACTIONS (3)
  - Abdominal pain [Unknown]
  - Vomiting [Unknown]
  - Fatigue [Unknown]
